FAERS Safety Report 10428557 (Version 1)
Quarter: 2014Q3

REPORT INFORMATION
  Report Type: Spontaneous
  Country: FR (occurrence: None)
  Receive Date: 20140829
  Receipt Date: 20140829
  Transmission Date: 20150326
  Serious: Yes (Death)
  Sender: FDA-Public Use
  Company Number: IMP_07861_2014

PATIENT
  Age: 46 Year
  Sex: Male

DRUGS (3)
  1. BACLOFEN (BACLOFEN) [Suspect]
     Active Substance: BACLOFEN
     Indication: ALCOHOLISM
  2. OXAZEPAM. [Concomitant]
     Active Substance: OXAZEPAM
  3. ALIMEMAZINE [Concomitant]
     Active Substance: TRIMEPRAZINE

REACTIONS (6)
  - Multi-organ failure [None]
  - Hypothermia [None]
  - Toxicity to various agents [None]
  - Myocardial infarction [None]
  - Coma [None]
  - Mydriasis [None]
